FAERS Safety Report 9099797 (Version 1)
Quarter: 2013Q1

REPORT INFORMATION
  Report Type: Report from Study
  Country: ZA (occurrence: ZA)
  Receive Date: 20130214
  Receipt Date: 20130214
  Transmission Date: 20140127
  Serious: Yes (Death, Hospitalization)
  Sender: FDA-Public Use
  Company Number: ZA-ROCHE-1190912

PATIENT
  Age: 58 Year
  Sex: Female

DRUGS (2)
  1. MIRCERA [Suspect]
     Indication: NEPHROGENIC ANAEMIA
     Route: 058
     Dates: start: 201202, end: 201301
  2. VENOFER [Concomitant]
     Route: 065

REACTIONS (2)
  - Death [Fatal]
  - Hypoglycaemia [Unknown]
